FAERS Safety Report 10656312 (Version 1)
Quarter: 2014Q4

REPORT INFORMATION
  Report Type: Spontaneous
  Country: DE (occurrence: DE)
  Receive Date: 20141216
  Receipt Date: 20141216
  Transmission Date: 20150529
  Serious: Yes (Congenital Anomaly)
  Sender: FDA-Public Use
  Company Number: DE-WATSON-2014-26582

PATIENT
  Age: 1 Day
  Sex: Female
  Weight: 3 kg

DRUGS (2)
  1. CITALOPRAM [Suspect]
     Active Substance: CITALOPRAM HYDROBROMIDE
     Indication: DEPRESSION
     Dosage: 20 MG, DAILY
     Route: 064
     Dates: start: 20110814, end: 20120517
  2. FOLSAEURE [Concomitant]
     Active Substance: FOLIC ACID
     Indication: PROPHYLAXIS OF NEURAL TUBE DEFECT
     Dosage: UNK, UNKNOWN
     Route: 064
     Dates: start: 20110814, end: 20120517

REACTIONS (7)
  - Moebius II syndrome [Not Recovered/Not Resolved]
  - Dysmorphism [Unknown]
  - Syndactyly [Unknown]
  - Developmental hip dysplasia [Unknown]
  - Foetal exposure during pregnancy [Unknown]
  - VIIth nerve paralysis [Not Recovered/Not Resolved]
  - Brachydactyly [Not Recovered/Not Resolved]

NARRATIVE: CASE EVENT DATE: 20120517
